FAERS Safety Report 10936213 (Version 3)
Quarter: 2015Q1

REPORT INFORMATION
  Report Type: Spontaneous
  Country: AR (occurrence: AR)
  Receive Date: 20150320
  Receipt Date: 20150330
  Transmission Date: 20150721
  Serious: Yes (Hospitalization)
  Sender: FDA-Public Use
  Company Number: PHHY2015AR031386

PATIENT
  Age: 56 Year
  Sex: Female
  Weight: 56 kg

DRUGS (13)
  1. DICLOFENAC [Suspect]
     Active Substance: DICLOFENAC
     Indication: ARTHRALGIA
  2. LOSARTAN [Suspect]
     Active Substance: LOSARTAN
     Indication: HYPERTENSION
     Dosage: 1 OT, QD
     Route: 048
     Dates: start: 20140904, end: 20140905
  3. MORFINA//MORPHINE [Suspect]
     Active Substance: MORPHINE SULFATE
     Indication: ARTHRALGIA
     Dosage: 1 ML, QD
     Route: 042
     Dates: start: 20140904, end: 20140904
  4. LOSACOR [Concomitant]
     Indication: HYPERTENSION
     Dosage: 50 MG, UNK
     Route: 065
     Dates: start: 20110611
  5. ALPLAX [Concomitant]
     Indication: PRODUCT USED FOR UNKNOWN INDICATION
     Route: 065
  6. CEPHALEXIN. [Concomitant]
     Active Substance: CEPHALEXIN
     Indication: INFECTION PROPHYLAXIS
     Dosage: 500 MG, QD
     Route: 048
     Dates: start: 20140905, end: 20140909
  7. LEVOTHYROXINE [Concomitant]
     Active Substance: LEVOTHYROXINE
     Indication: HYPOTHYROIDISM
     Route: 065
  8. VITAMIN B-6 [Concomitant]
     Active Substance: PYRIDOXINE
     Indication: PRODUCT USED FOR UNKNOWN INDICATION
     Dosage: 1 DF, QD
     Route: 065
  9. DICLOFENAC [Suspect]
     Active Substance: DICLOFENAC
     Indication: RHEUMATOID ARTHRITIS
     Dosage: 4 OT, QD
     Route: 048
     Dates: start: 20140904, end: 20141001
  10. PROPOFOL. [Concomitant]
     Active Substance: PROPOFOL
     Indication: ANAESTHESIA PROCEDURE
     Dosage: 4 ML, ONCE/SINGLE
     Route: 042
     Dates: start: 20140904, end: 20140904
  11. VITAMIN B-1 [Concomitant]
     Indication: PRODUCT USED FOR UNKNOWN INDICATION
     Dosage: 1 DF, QD
     Route: 065
  12. VITAMIN B12 [Concomitant]
     Active Substance: CYANOCOBALAMIN
     Indication: PRODUCT USED FOR UNKNOWN INDICATION
     Dosage: 1 DF, QD
     Route: 065
  13. BOSUTINIB [Suspect]
     Active Substance: BOSUTINIB
     Indication: CHRONIC MYELOID LEUKAEMIA
     Dosage: 500 MG, QD
     Route: 048
     Dates: start: 20081217

REACTIONS (12)
  - Vomiting [Recovering/Resolving]
  - Inflammation [Recovering/Resolving]
  - Arthralgia [Recovering/Resolving]
  - Gastrointestinal disorder [Recovered/Resolved with Sequelae]
  - Diarrhoea [Recovering/Resolving]
  - Blood potassium decreased [Unknown]
  - Haemoglobin decreased [Unknown]
  - Nausea [Recovering/Resolving]
  - Abdominal pain [Recovering/Resolving]
  - Gastrooesophageal reflux disease [Recovering/Resolving]
  - Platelet count decreased [Unknown]
  - Pain in extremity [Recovering/Resolving]

NARRATIVE: CASE EVENT DATE: 20140904
